FAERS Safety Report 22249546 (Version 1)
Quarter: 2023Q2

REPORT INFORMATION
  Report Type: Spontaneous
  Country: US (occurrence: None)
  Receive Date: 20230421
  Receipt Date: 20230421
  Transmission Date: 20230722
  Serious: Yes (Death)
  Sender: FDA-Public Use
  Company Number: None

PATIENT
  Age: 77 Year
  Sex: Male
  Weight: 77.11 kg

DRUGS (15)
  1. OPDIVO [Suspect]
     Active Substance: NIVOLUMAB
     Indication: Malignant melanoma
     Dosage: FREQUENCY : EVERY OTHER WEEK;?
     Route: 048
     Dates: end: 20230327
  2. ASPIRIN [Concomitant]
     Active Substance: ASPIRIN
  3. ALLOPURINOL [Concomitant]
  4. CHLORTHALIDONE [Concomitant]
  5. COLCHICINE [Concomitant]
  6. FINASTERIDE [Concomitant]
     Active Substance: FINASTERIDE
  7. GABAPENTIN [Concomitant]
  8. Lidocaine  External Patch [Concomitant]
  9. METFORMIN [Concomitant]
  10. METOPROLOL [Concomitant]
  11. OMEPRAZOLE [Concomitant]
  12. Oxybutyin Chloride ER [Concomitant]
  13. OXYCODONE [Concomitant]
  14. ROSUVASTATIN [Concomitant]
  15. TRAMADOL [Concomitant]

REACTIONS (1)
  - Death [None]
